FAERS Safety Report 9465278 (Version 3)
Quarter: 2013Q3

REPORT INFORMATION
  Report Type: Report from Study
  Country: BR (occurrence: BR)
  Receive Date: 20130819
  Receipt Date: 20130917
  Transmission Date: 20140515
  Serious: Yes (Hospitalization, Other)
  Sender: FDA-Public Use
  Company Number: PHHY2012BR064855

PATIENT
  Sex: Female
  Weight: 69 kg

DRUGS (11)
  1. CALCIUM-SANDOZ FORTE + FORTISSIMUM [Suspect]
     Indication: FORMICATION
     Dosage: 3000 MG DAILY
     Route: 048
     Dates: start: 201108
  2. CALCIUM-SANDOZ FORTE + FORTISSIMUM [Suspect]
     Dosage: 2000 MG DAILY
     Route: 048
  3. OMEPRAZOLE [Suspect]
     Indication: ABDOMINAL PAIN UPPER
     Dosage: 1 DF, DAILY
     Route: 048
     Dates: end: 201301
  4. CALDE [Suspect]
     Indication: FORMICATION
     Dosage: 6 DF, DAILY
     Route: 048
     Dates: start: 2012
  5. OSCAL D [Suspect]
     Indication: FORMICATION
     Dosage: 6 DF, DAILY
     Route: 048
     Dates: start: 2012
  6. CALTRATE [Concomitant]
     Indication: FORMICATION
     Dosage: 3 DF, ( 2 TABLETS AT LUNCH AND 1 TABLET AT NIGHT)
     Route: 048
  7. ESTROFEM [Concomitant]
     Indication: MENOPAUSE
     Dosage: 1 DF, DAILY
     Route: 048
  8. NATIFA [Concomitant]
     Indication: MENOPAUSE
     Dosage: 1 DF, DAILY
     Route: 048
  9. SYNTHROID [Concomitant]
     Indication: THYROID DISORDER
     Dosage: 1 DF, UNK (125 MCG)
     Route: 048
     Dates: start: 201108, end: 201211
  10. SYNTHROID [Concomitant]
     Dosage: 1 DF, UNK (112 MCG)
     Route: 048
     Dates: start: 201211
  11. DIGEPLUS [Concomitant]
     Indication: DYSPEPSIA
     Dosage: 2 DF, DAILY
     Route: 048

REACTIONS (15)
  - Thyroglossal cyst [Unknown]
  - Formication [Recovered/Resolved]
  - Musculoskeletal stiffness [Recovered/Resolved]
  - Speech disorder [Recovered/Resolved]
  - Tongue disorder [Recovered/Resolved]
  - Oesophageal polyp [Recovered/Resolved]
  - Oesophagitis [Recovering/Resolving]
  - Feeling abnormal [Recovering/Resolving]
  - Paraesthesia [Recovering/Resolving]
  - Nervousness [Recovered/Resolved]
  - Stress [Recovered/Resolved]
  - Anxiety [Recovered/Resolved]
  - Blood calcium decreased [Recovering/Resolving]
  - Abdominal discomfort [Recovering/Resolving]
  - Abdominal pain upper [Recovered/Resolved]
